FAERS Safety Report 5286925-6 (Version None)
Quarter: 2007Q1

REPORT INFORMATION
  Report Type: 
  Country: None (occurrence: None)
  Receive Date: 20070329
  Receipt Date: 20070319
  Transmission Date: 20070707
  Serious: Yes (Hospitalization)
  Sender: FDA-Public Use
  Company Number: 15988

PATIENT
  Age: 68 Year
  Sex: Female

DRUGS (10)
  1. CYTARABINE [Suspect]
     Indication: ACUTE MYELOID LEUKAEMIA
     Dosage: 20 MG/M2, UNK; SC
     Route: 058
     Dates: start: 20070201, end: 20070201
  2. CYTARABINE [Suspect]
     Indication: ACUTE MYELOID LEUKAEMIA
     Dosage: 20 MG/M2; UNK; SC
     Route: 058
     Dates: start: 20070206
  3. AMPHOTERICIN B [Concomitant]
  4. NITROMETHASONE [Concomitant]
  5. ERYTHROMYCIN [Concomitant]
  6. CEFOTAXIME [Concomitant]
  7. BROMHEXINE [Concomitant]
  8. LASIX [Concomitant]
  9. VERAPAMIL [Concomitant]
  10. POTASSIUM ACETATE [Concomitant]

REACTIONS (1)
  - TOXIC SHOCK SYNDROME [None]
